FAERS Safety Report 8566262-4 (Version None)
Quarter: 2012Q3

REPORT INFORMATION
  Report Type: 
  Country: None (occurrence: None)
  Receive Date: 20120803
  Receipt Date: 20111128
  Transmission Date: 20120928
  Serious: No
  Sender: FDA-Public Use
  Company Number: US-ABBOTT-11P-163-0878045-00

PATIENT
  Sex: Male
  Weight: 83.99 kg

DRUGS (3)
  1. AMIRIX [Concomitant]
     Indication: MYALGIA
  2. PERCOCET [Concomitant]
     Indication: BACK PAIN
  3. NIASPAN [Suspect]
     Indication: BLOOD CHOLESTEROL INCREASED
     Dates: start: 20111114

REACTIONS (1)
  - PALPITATIONS [None]
